FAERS Safety Report 9603839 (Version 1)
Quarter: 2013Q4

REPORT INFORMATION
  Report Type: Spontaneous
  Country: US (occurrence: US)
  Receive Date: 20131008
  Receipt Date: 20131008
  Transmission Date: 20140711
  Serious: No
  Sender: FDA-Public Use
  Company Number: US-B.I. PHARMACEUTICALS,INC./RIDGEFIELD-2013-BI-30720BP

PATIENT
  Age: 34 Year
  Sex: Male
  Weight: 73 kg

DRUGS (5)
  1. SPIRIVA [Suspect]
     Indication: CHRONIC OBSTRUCTIVE PULMONARY DISEASE
     Dosage: 18 MCG
     Route: 055
     Dates: start: 2011
  2. HYDROCHLOROTHIAZIDE [Concomitant]
     Indication: HYPERTENSION
     Route: 048
  3. ADVAIR [Concomitant]
     Indication: CHRONIC OBSTRUCTIVE PULMONARY DISEASE
     Route: 055
  4. LISINOPRIL [Concomitant]
     Indication: HYPERTENSION
     Route: 048
  5. CARVEDILOL [Concomitant]
     Route: 048

REACTIONS (3)
  - Constipation [Not Recovered/Not Resolved]
  - Halo vision [Not Recovered/Not Resolved]
  - Rash [Recovered/Resolved]
